FAERS Safety Report 23917359 (Version 1)
Quarter: 2024Q2

REPORT INFORMATION
  Report Type: Spontaneous
  Country: IL (occurrence: IL)
  Receive Date: 20240529
  Receipt Date: 20240529
  Transmission Date: 20240715
  Serious: Yes (Death, Other)
  Sender: FDA-Public Use
  Company Number: IL-STRIDES ARCOLAB LIMITED-2024SP006172

PATIENT
  Age: 31 Year
  Sex: Female

DRUGS (18)
  1. HYDROCORTISONE [Interacting]
     Active Substance: HYDROCORTISONE
     Indication: Cytokine storm
     Dosage: UNK
     Route: 065
     Dates: start: 2021
  2. DISULFIRAM [Suspect]
     Active Substance: DISULFIRAM
     Indication: Triple negative breast cancer
     Dosage: UNK
     Route: 065
     Dates: start: 202110
  3. DOXORUBICIN [Suspect]
     Active Substance: DOXORUBICIN
     Indication: Triple negative breast cancer
     Dosage: UNK
     Route: 065
     Dates: start: 202006, end: 202006
  4. DOXORUBICIN [Suspect]
     Active Substance: DOXORUBICIN
     Dosage: UNK
     Route: 065
     Dates: start: 202110
  5. SACITUZUMAB GOVITECAN [Suspect]
     Active Substance: SACITUZUMAB GOVITECAN
     Indication: Triple negative breast cancer
     Dosage: UNK
     Route: 065
     Dates: start: 202108
  6. BEVACIZUMAB [Suspect]
     Active Substance: BEVACIZUMAB
     Indication: Triple negative breast cancer
     Dosage: UNK
     Route: 065
     Dates: start: 202110
  7. OLAPARIB [Suspect]
     Active Substance: OLAPARIB
     Indication: Triple negative breast cancer
     Dosage: UNK
     Route: 065
  8. OLAPARIB [Suspect]
     Active Substance: OLAPARIB
     Dosage: UNK
     Route: 065
  9. ALDESLEUKIN [Suspect]
     Active Substance: ALDESLEUKIN
     Indication: Triple negative breast cancer
     Dosage: 18000000 INTERNATIONAL UNIT, TOTAL (PER 24 HOURS)
     Route: 065
     Dates: start: 2021
  10. ALDESLEUKIN [Suspect]
     Active Substance: ALDESLEUKIN
     Dosage: 45000000 INTERNATIONAL UNIT, TOTAL
     Route: 065
     Dates: start: 2021
  11. LYMPHOCYTES [Interacting]
     Active Substance: LYMPHOCYTES
     Indication: Triple negative breast cancer
     Dosage: UNK
     Route: 065
     Dates: start: 202111
  12. PEMBROLIZUMAB [Suspect]
     Active Substance: PEMBROLIZUMAB
     Indication: Triple negative breast cancer
     Dosage: UNK
     Route: 065
     Dates: start: 202105
  13. CYCLOPHOSPHAMIDE [Suspect]
     Active Substance: CYCLOPHOSPHAMIDE
     Indication: Triple negative breast cancer
     Dosage: UNK
     Route: 065
     Dates: start: 202006, end: 202006
  14. CYCLOPHOSPHAMIDE [Suspect]
     Active Substance: CYCLOPHOSPHAMIDE
     Dosage: UNK
     Route: 065
  15. PACLITAXEL [Suspect]
     Active Substance: PACLITAXEL
     Indication: Triple negative breast cancer
     Dosage: UNK
     Route: 065
     Dates: start: 202008, end: 202010
  16. CAPECITABINE [Suspect]
     Active Substance: CAPECITABINE
     Indication: Triple negative breast cancer
     Dosage: UNK
     Route: 065
     Dates: start: 202012, end: 202012
  17. CARBOPLATIN [Suspect]
     Active Substance: CARBOPLATIN
     Indication: Triple negative breast cancer
     Dosage: UNK
     Route: 065
     Dates: start: 202010, end: 202010
  18. FLUDARABINE [Suspect]
     Active Substance: FLUDARABINE PHOSPHATE
     Indication: Triple negative breast cancer
     Dosage: UNK
     Route: 065

REACTIONS (10)
  - Renal failure [Unknown]
  - Drug interaction [Fatal]
  - Breast cancer recurrent [Fatal]
  - Drug ineffective for unapproved indication [Unknown]
  - Breast cancer [Unknown]
  - Cardiac failure [Recovered/Resolved]
  - Myocarditis [Recovered/Resolved]
  - Pulmonary congestion [Recovered/Resolved]
  - Shock [Unknown]
  - Left ventricular dysfunction [Recovered/Resolved]
